FAERS Safety Report 8375639 (Version 2)
Quarter: 2013Q1

REPORT INFORMATION
  Report Type: Spontaneous
  Country: US (occurrence: US)
  Receive Date: 20120129
  Receipt Date: 20130129
  Transmission Date: 20140127
  Serious: Yes (Other)
  Sender: FDA-Public Use
  Company Number: US-ABBOTT-11P-163-0883930-00

PATIENT
  Sex: Female
  Weight: 84.9 kg

DRUGS (14)
  1. HUMIRA 40 MG/0.8 ML PEN [Suspect]
     Indication: RHEUMATOID ARTHRITIS
     Route: 058
     Dates: start: 20100610
  2. HUMIRA 40 MG/0.8 ML PEN [Suspect]
     Indication: PSORIATIC ARTHROPATHY
     Route: 058
     Dates: start: 201108
  3. REMICADE [Suspect]
     Indication: RHEUMATOID ARTHRITIS
     Dates: start: 2010, end: 20110729
  4. REMICADE [Suspect]
     Indication: PSORIATIC ARTHROPATHY
  5. VOLTAREN [Concomitant]
     Indication: ARTHRALGIA
     Dosage: GEL AS REQUIRED
  6. LOTREL [Concomitant]
     Indication: HYPERTENSION
     Dosage: 5/20MG
  7. NEXIUM [Concomitant]
     Indication: GASTROOESOPHAGEAL REFLUX DISEASE
  8. OLUX-E [Concomitant]
     Indication: PSORIASIS
  9. OMEGA 3 [Concomitant]
     Indication: VITAMIN SUPPLEMENTATION
  10. PRAMOSONE [Concomitant]
     Indication: PSORIASIS
     Dosage: 1-2.5%
     Route: 061
  11. SINGULAR [Concomitant]
     Indication: PRODUCT USED FOR UNKNOWN INDICATION
     Dosage: AT BEDTIME
  12. SYNTHROID [Concomitant]
     Indication: HYPOTHYROIDISM
  13. ZOCOR [Concomitant]
     Indication: BLOOD CHOLESTEROL INCREASED
  14. ZYRTEC [Concomitant]
     Indication: HYPERSENSITIVITY
     Dosage: AT BEDTIME

REACTIONS (4)
  - Pancytopenia [Recovered/Resolved]
  - Drug ineffective [Recovered/Resolved]
  - Aphthous stomatitis [Recovered/Resolved]
  - Psoriasis [Not Recovered/Not Resolved]
